FAERS Safety Report 11380065 (Version 1)
Quarter: 2015Q3

REPORT INFORMATION
  Report Type: Report from Study
  Country: BR (occurrence: BR)
  Receive Date: 20150814
  Receipt Date: 20150814
  Transmission Date: 20151125
  Serious: Yes (Other)
  Sender: FDA-Public Use
  Company Number: PHHY2015BR086103

PATIENT
  Age: 39 Year
  Sex: Male
  Weight: 113 kg

DRUGS (2)
  1. SANDOSTATIN LAR DEPOT [Suspect]
     Active Substance: OCTREOTIDE ACETATE
     Indication: ACROMEGALY
     Dosage: 30 MG, QMO
     Route: 030
     Dates: start: 201203
  2. DOSTINEX [Concomitant]
     Active Substance: CABERGOLINE
     Indication: BLOOD PROLACTIN ABNORMAL
     Dosage: 4 DF, QW (TWICE A WEEK, 2 TABLETS PER DAY)
     Route: 065
     Dates: start: 201203

REACTIONS (3)
  - Lung infection [Recovered/Resolved]
  - Nasopharyngitis [Recovered/Resolved]
  - Sputum discoloured [Recovered/Resolved]

NARRATIVE: CASE EVENT DATE: 201506
